FAERS Safety Report 5145131-6 (Version None)
Quarter: 2006Q4

REPORT INFORMATION
  Report Type: 
  Country: None (occurrence: None)
  Receive Date: 20061107
  Receipt Date: 20061025
  Transmission Date: 20070319
  Serious: Yes (Death, Hospitalization)
  Sender: FDA-Public Use
  Company Number: ES-ELI_LILLY_AND_COMPANY-ES200610004524

PATIENT
  Age: 83 Year
  Sex: Female

DRUGS (3)
  1. FORTEO [Suspect]
     Indication: OSTEOPOROSIS
     Dosage: 20 UG, DAILY (1/D)
     Route: 058
     Dates: start: 20060701, end: 20061007
  2. URBASON [Concomitant]
  3. SINTROM                                 /NET/ [Concomitant]

REACTIONS (6)
  - ARRHYTHMIA [None]
  - FALL [None]
  - HIP FRACTURE [None]
  - HIP SURGERY [None]
  - POST PROCEDURAL HAEMORRHAGE [None]
  - TACHYCARDIA [None]
